FAERS Safety Report 21134217 (Version 2)
Quarter: 2022Q3

REPORT INFORMATION
  Report Type: Spontaneous
  Country: PT (occurrence: PT)
  Receive Date: 20220726
  Receipt Date: 20220914
  Transmission Date: 20221026
  Serious: Yes (Death, Other)
  Sender: FDA-Public Use
  Company Number: PT-GILEAD-2022-0590637

PATIENT
  Age: 56 Year
  Sex: Male

DRUGS (7)
  1. EPCLUSA [Suspect]
     Active Substance: SOFOSBUVIR\VELPATASVIR
     Indication: Hepatitis C
     Dosage: UNK
     Route: 065
     Dates: start: 20191017
  2. SPIRONOLACTONE [Concomitant]
     Active Substance: SPIRONOLACTONE
  3. FUROSEMIDE [Concomitant]
     Active Substance: FUROSEMIDE
  4. ESOMEPRAZOLE [Concomitant]
     Active Substance: ESOMEPRAZOLE
  5. LACTULOSE [Concomitant]
     Active Substance: LACTULOSE
  6. TIAPRIDE [Concomitant]
     Active Substance: TIAPRIDE
  7. OXAZEPAM [Concomitant]
     Active Substance: OXAZEPAM

REACTIONS (1)
  - Death [Fatal]

NARRATIVE: CASE EVENT DATE: 20200311
